FAERS Safety Report 9299508 (Version 1)
Quarter: 2013Q2

REPORT INFORMATION
  Report Type: Spontaneous
  Country: US (occurrence: US)
  Receive Date: 20130521
  Receipt Date: 20130521
  Transmission Date: 20140414
  Serious: No
  Sender: FDA-Public Use
  Company Number: US-009507513-1305USA011254

PATIENT
  Sex: 0

DRUGS (1)
  1. SAPHRIS [Suspect]
     Dosage: 10 MG, BID
     Route: 060

REACTIONS (1)
  - Glossodynia [Unknown]
